FAERS Safety Report 20661205 (Version 2)
Quarter: 2022Q3

REPORT INFORMATION
  Report Type: Spontaneous
  Country: US (occurrence: US)
  Receive Date: 20220401
  Receipt Date: 20220922
  Transmission Date: 20221026
  Serious: Yes (Hospitalization, Other)
  Sender: FDA-Public Use
  Company Number: None

PATIENT
  Age: 36 Year
  Sex: Female

DRUGS (5)
  1. PREDNISOLONE [Suspect]
     Active Substance: PREDNISOLONE
     Indication: Relapsing-remitting multiple sclerosis
     Dosage: UNK (TAPER (AFTER THE SECOND RELAPSE))
     Route: 048
  2. PREDNISOLONE [Suspect]
     Active Substance: PREDNISOLONE
     Indication: Cauda equina syndrome
     Dosage: UNK (FIRST RELAPSE)
     Route: 048
  3. METHYLPREDNISOLONE [Suspect]
     Active Substance: METHYLPREDNISOLONE
     Indication: Relapsing-remitting multiple sclerosis
     Dosage: UNK, HIGH DOSE, 1ST RELAPSE
     Route: 042
  4. METHYLPREDNISOLONE [Suspect]
     Active Substance: METHYLPREDNISOLONE
     Indication: Cauda equina syndrome
     Dosage: UNK, HIGH DOSE, TAPER (AFTER THE SECOND RELAPSE)
     Route: 042
  5. GLATIRAMER ACETATE [Suspect]
     Active Substance: GLATIRAMER ACETATE
     Indication: Relapsing-remitting multiple sclerosis
     Dosage: UNK
     Route: 065

REACTIONS (7)
  - Cauda equina syndrome [Recovered/Resolved]
  - Anal incontinence [Recovered/Resolved]
  - Urinary incontinence [Recovered/Resolved]
  - Paraplegia [Not Recovered/Not Resolved]
  - Hypotonia [Not Recovered/Not Resolved]
  - Elsberg syndrome [Recovered/Resolved]
  - Herpes simplex reactivation [Recovered/Resolved]
